FAERS Safety Report 8212683-9 (Version None)
Quarter: 2012Q1

REPORT INFORMATION
  Report Type: 
  Country: None (occurrence: None)
  Receive Date: 20120315
  Receipt Date: 20120302
  Transmission Date: 20120608
  Serious: Yes (Hospitalization)
  Sender: FDA-Public Use
  Company Number: US-AMGEN-USASP2012014082

PATIENT
  Age: 74 Year
  Sex: Female

DRUGS (1)
  1. ENBREL [Suspect]
     Indication: RHEUMATOID ARTHRITIS
     Dosage: 50 MG, QWK
     Dates: start: 20100101, end: 20110801

REACTIONS (4)
  - PAIN [None]
  - ATRIAL FIBRILLATION [None]
  - MUSCULOSKELETAL PAIN [None]
  - MYCOBACTERIUM KANSASII INFECTION [None]
